FAERS Safety Report 22373490 (Version 1)
Quarter: 2023Q2

REPORT INFORMATION
  Report Type: Spontaneous
  Country: US (occurrence: None)
  Receive Date: 20230526
  Receipt Date: 20230526
  Transmission Date: 20230722
  Serious: Yes (Hospitalization)
  Sender: FDA-Public Use
  Company Number: None

PATIENT
  Age: 69 Year
  Sex: Female

DRUGS (2)
  1. HUMIRA [Suspect]
     Active Substance: ADALIMUMAB
     Indication: Rheumatoid arthritis
     Dosage: ?THERAPY DATE: ON HOLD?
     Route: 058
     Dates: start: 202305
  2. HUMIRA [Suspect]
     Active Substance: ADALIMUMAB
     Indication: Sjogren^s syndrome

REACTIONS (3)
  - Illness [None]
  - Infection [None]
  - Therapy interrupted [None]
